FAERS Safety Report 13273006 (Version 1)
Quarter: 2017Q1

REPORT INFORMATION
  Report Type: Spontaneous
  Country: CA (occurrence: CA)
  Receive Date: 20170227
  Receipt Date: 20170227
  Transmission Date: 20170428
  Serious: Yes (Death, Other)
  Sender: FDA-Public Use
  Company Number: CA-MALLINCKRODT-T201700634

PATIENT
  Age: 12 Week

DRUGS (4)
  1. CLOXACILLIN [Concomitant]
     Active Substance: CLOXACILLIN
  2. INOMAX [Suspect]
     Active Substance: NITRIC OXIDE
     Indication: PULMONARY HYPERTENSION
  3. GENTAMYCIN                         /00047101/ [Concomitant]
     Active Substance: GENTAMICIN
  4. MILRINONE [Concomitant]
     Active Substance: MILRINONE
     Route: 042

REACTIONS (2)
  - Respiratory failure [Fatal]
  - Right ventricular dysfunction [Unknown]
